FAERS Safety Report 12001044 (Version 1)
Quarter: 2016Q1

REPORT INFORMATION
  Report Type: Report from Study
  Country: CA (occurrence: CA)
  Receive Date: 20160204
  Receipt Date: 20160204
  Transmission Date: 20160526
  Serious: Yes (Death, Hospitalization, Other)
  Sender: FDA-Public Use
  Company Number: CA-GILEAD-2016-0196144

PATIENT
  Age: 85 Year
  Sex: Male

DRUGS (20)
  1. LOPERAMIDE [Concomitant]
     Active Substance: LOPERAMIDE
  2. NASONEX [Concomitant]
     Active Substance: MOMETASONE FUROATE
  3. COVERSYL                           /00790702/ [Concomitant]
     Active Substance: PERINDOPRIL
  4. XALACOM [Concomitant]
     Active Substance: LATANOPROST\TIMOLOL MALEATE
  5. ZOPICLONE [Concomitant]
     Active Substance: ZOPICLONE
  6. FRAGMIN [Concomitant]
     Active Substance: DALTEPARIN SODIUM
  7. DORZOLAMIDE [Concomitant]
     Active Substance: DORZOLAMIDE
  8. FUROSEMIDE. [Concomitant]
     Active Substance: FUROSEMIDE
  9. MULTIVITAMIN                       /02376401/ [Concomitant]
  10. ASPIRIN                            /00002701/ [Concomitant]
     Active Substance: ASPIRIN
  11. DALTEPARIN [Concomitant]
     Active Substance: DALTEPARIN
  12. ATORVASTATIN [Concomitant]
     Active Substance: ATORVASTATIN
  13. BETAMETHASONE. [Concomitant]
     Active Substance: BETAMETHASONE
  14. METOPROLOL. [Concomitant]
     Active Substance: METOPROLOL
  15. VITAMIN D3 [Concomitant]
     Active Substance: CHOLECALCIFEROL
  16. IDELALISIB [Suspect]
     Active Substance: IDELALISIB
     Indication: NON-HODGKIN^S LYMPHOMA UNSPECIFIED HISTOLOGY INDOLENT
     Dosage: 150 MG, BID
     Route: 048
     Dates: start: 20160108, end: 201601
  17. KCL [Concomitant]
     Active Substance: POTASSIUM CHLORIDE
  18. FLAGYL [Concomitant]
     Active Substance: METRONIDAZOLE\METRONIDAZOLE HYDROCHLORIDE
  19. CODEINE [Concomitant]
     Active Substance: CODEINE
  20. OMNARIS [Concomitant]
     Active Substance: CICLESONIDE

REACTIONS (2)
  - Pneumonia bacterial [Not Recovered/Not Resolved]
  - Death [Fatal]

NARRATIVE: CASE EVENT DATE: 201601
